FAERS Safety Report 16109557 (Version 1)
Quarter: 2019Q1

REPORT INFORMATION
  Report Type: Spontaneous
  Country: US (occurrence: US)
  Receive Date: 20190324
  Receipt Date: 20190324
  Transmission Date: 20190418
  Serious: No
  Sender: FDA-Public Use
  Company Number: US-SA-2019SA075315

PATIENT
  Age: 69 Year
  Sex: Female

DRUGS (8)
  1. PROVIGIL [CHORIONIC GONADOTROPHIN] [Concomitant]
     Active Substance: GONADOTROPHIN, CHORIONIC
  2. ADVIL [IBUPROFEN] [Concomitant]
     Active Substance: IBUPROFEN
  3. FOSAMAX [Concomitant]
     Active Substance: ALENDRONATE SODIUM
  4. ASPIRIN [ACETYLSALICYLIC ACID] [Concomitant]
     Active Substance: ASPIRIN
  5. AUBAGIO [Suspect]
     Active Substance: TERIFLUNOMIDE
     Indication: MULTIPLE SCLEROSIS
     Dosage: 14 MG, QD
     Route: 048
     Dates: start: 20161212
  6. VITAMIN D3 [Concomitant]
     Active Substance: CHOLECALCIFEROL
  7. LOTREL [LOTEPREDNOL ETABONATE] [Concomitant]
  8. SYNTHROID [Concomitant]
     Active Substance: LEVOTHYROXINE SODIUM

REACTIONS (1)
  - Cyst [Recovered/Resolved]
